FAERS Safety Report 19895057 (Version 1)
Quarter: 2021Q3

REPORT INFORMATION
  Report Type: Report from Study
  Country: DE (occurrence: DE)
  Receive Date: 20210929
  Receipt Date: 20210929
  Transmission Date: 20211014
  Serious: Yes (Death, Life-Threatening, Other)
  Sender: FDA-Public Use
  Company Number: DE-SECURA BIO, INC.-2017DE019477

PATIENT

DRUGS (11)
  1. PANOBINOSTAT [Suspect]
     Active Substance: PANOBINOSTAT
     Dosage: 10 MG, QD, ONCE WEEKLY, 2 WEEKS ON, 1 WEEK OFF
     Route: 048
     Dates: start: 20170502, end: 20170516
  2. DEXAMETHASONE. [Suspect]
     Active Substance: DEXAMETHASONE
     Dosage: 20 MG
     Route: 048
     Dates: start: 20170615, end: 20170622
  3. DARATUMUMAB [Concomitant]
     Active Substance: DARATUMUMAB
     Indication: MALIGNANT NEOPLASM PROGRESSION
     Dosage: 46 MG, QD
     Route: 065
     Dates: start: 20170712
  4. PANOBINOSTAT [Suspect]
     Active Substance: PANOBINOSTAT
     Dosage: 10 MG, QD, ONCE WEEKLY, 2 WEEKS ON, 1 WEEK OFF
     Route: 048
     Dates: start: 20170517, end: 20170622
  5. DEXAMETHASONE. [Suspect]
     Active Substance: DEXAMETHASONE
     Indication: PLASMA CELL MYELOMA
     Dosage: 20 UNK
     Route: 048
     Dates: start: 20170502, end: 20170516
  6. BORTEZOMIB. [Suspect]
     Active Substance: BORTEZOMIB
     Dosage: 1.3 MG
     Route: 042
     Dates: start: 20170615, end: 20170622
  7. DARATUMUMAB [Concomitant]
     Active Substance: DARATUMUMAB
     Indication: PLASMA CELL MYELOMA
  8. PANOBINOSTAT [Suspect]
     Active Substance: PANOBINOSTAT
     Indication: PLASMA CELL MYELOMA
     Dosage: 10 MG, QD, ONCE WEEKLY, 2 WEEKS ON, 1 WEEK OFF
     Route: 048
     Dates: start: 20170228, end: 20170624
  9. BORTEZOMIB. [Suspect]
     Active Substance: BORTEZOMIB
     Dosage: UNK MG
     Route: 042
     Dates: start: 20170517, end: 20170614
  10. DEXAMETHASONE. [Suspect]
     Active Substance: DEXAMETHASONE
     Dosage: UNK MG
     Route: 048
     Dates: start: 20170517, end: 20170614
  11. BORTEZOMIB. [Suspect]
     Active Substance: BORTEZOMIB
     Indication: PLASMA CELL MYELOMA
     Dosage: 1.3 MG
     Route: 042
     Dates: start: 20170502, end: 20170516

REACTIONS (9)
  - Septic shock [Fatal]
  - Pyrexia [Not Recovered/Not Resolved]
  - Pancytopenia [Not Recovered/Not Resolved]
  - Thrombocytopenia [Recovering/Resolving]
  - Diarrhoea [Recovered/Resolved]
  - Hypotension [Not Recovered/Not Resolved]
  - Pyrexia [Recovered/Resolved]
  - Tachycardia [Not Recovered/Not Resolved]
  - Bone pain [Not Recovered/Not Resolved]

NARRATIVE: CASE EVENT DATE: 20170503
